FAERS Safety Report 7765653-9 (Version None)
Quarter: 2011Q3

REPORT INFORMATION
  Report Type: 
  Country: None (occurrence: None)
  Receive Date: 20110921
  Receipt Date: 20110916
  Transmission Date: 20111222
  Serious: Yes (Other)
  Sender: FDA-Public Use
  Company Number: US-PFIZER INC-2011220489

PATIENT
  Sex: Female
  Weight: 99.773 kg

DRUGS (12)
  1. EFFEXOR XR [Suspect]
     Indication: DEPRESSION
     Dosage: 150 MG, 1X/DAY
     Route: 048
     Dates: start: 20010101, end: 20110101
  2. MICARDIS HCT [Concomitant]
     Indication: HYPERTENSION
     Dosage: 80/25 MG,DAILY
     Route: 048
  3. MIRAPEX [Concomitant]
     Indication: RESTLESS LEGS SYNDROME
     Dosage: 1 MG, UNK
     Route: 048
  4. MILNACIPRAN HYDROCHLORIDE [Concomitant]
     Indication: FIBROMYALGIA
     Dosage: 50 MG, 2X/DAY
     Route: 048
  5. LYRICA [Concomitant]
     Indication: FIBROMYALGIA
     Dosage: 50 MG, 2X/DAY
     Route: 048
  6. METOPROLOL [Concomitant]
     Indication: HYPERTENSION
     Dosage: 12.5 MG, 2X/DAY
  7. TRILIPIX [Concomitant]
     Dosage: 135 MG, UNK
     Route: 048
  8. PLAQUENIL [Concomitant]
     Indication: IMMUNE SYSTEM DISORDER
     Dosage: 200 MG, 2X/DAY
     Route: 048
  9. LEVOTHYROXINE [Concomitant]
     Indication: THYROID DISORDER
     Dosage: 275 UG, 1X/DAY
  10. SIMVASTATIN [Concomitant]
     Dosage: 40 MG, UNK
  11. NOVOLOG MIX 70/30 [Concomitant]
     Indication: DIABETES MELLITUS
     Dosage: 70/30 IU, UNK
  12. LANTUS [Concomitant]
     Indication: DIABETES MELLITUS
     Dosage: 100 IU, 1X/DAY

REACTIONS (5)
  - PARAESTHESIA [None]
  - DIZZINESS [None]
  - HYPOAESTHESIA [None]
  - SYNCOPE [None]
  - CHEST DISCOMFORT [None]
